FAERS Safety Report 15568684 (Version 8)
Quarter: 2020Q3

REPORT INFORMATION
  Report Type: Report from Study
  Country: CO (occurrence: CO)
  Receive Date: 20181031
  Receipt Date: 20200710
  Transmission Date: 20201102
  Serious: Yes (Hospitalization, Other)
  Sender: FDA-Public Use
  Company Number: CO-ASTELLAS-2018US046279

PATIENT
  Age: 44 Year
  Sex: Female

DRUGS (11)
  1. TACROLIMUS. [Suspect]
     Active Substance: TACROLIMUS
     Dosage: 10 MG(TACROLIMUS 1 CAPSULE OF 5MG AND 5 CAPSULES OF 1MG), ONCE DAILY
     Route: 048
     Dates: start: 20190726
  2. TACROLIMUS. [Suspect]
     Active Substance: TACROLIMUS
     Route: 048
     Dates: start: 20200618
  3. TACROLIMUS. [Suspect]
     Active Substance: TACROLIMUS
     Route: 048
     Dates: start: 20190901, end: 20190901
  4. TACROLIMUS. [Suspect]
     Active Substance: TACROLIMUS
     Route: 048
  5. TACROLIMUS. [Suspect]
     Active Substance: TACROLIMUS
     Route: 048
     Dates: start: 20191210, end: 20200617
  6. PREDNISOLONE. [Concomitant]
     Active Substance: PREDNISOLONE
     Indication: RENAL TRANSPLANT
     Route: 048
     Dates: start: 20180911
  7. MYCOPHENOLATE [Concomitant]
     Active Substance: MYCOPHENOLIC ACID
     Indication: TRANSPLANT
     Dosage: 2 CAPSULES (360MG) IN THE MORNING AND 1 CAPSULE (360 MG) IN THE AFTERNOON OF 360 MG
     Route: 048
     Dates: start: 20180911
  8. MYCOPHENOLATE [Concomitant]
     Active Substance: MYCOPHENOLIC ACID
     Indication: RENAL TRANSPLANT
     Route: 048
  9. LOSARTAN. [Concomitant]
     Active Substance: LOSARTAN
     Indication: BLOOD PRESSURE MEASUREMENT
     Route: 048
     Dates: start: 20180911
  10. TACROLIMUS. [Suspect]
     Active Substance: TACROLIMUS
     Dosage: 7 MG((TACROLIMUS 1 CAPSULE OF 5MG AND 2 CAPSULES OF 1MG), ONCE DAILY
     Route: 048
     Dates: start: 201906, end: 20190725
  11. TACROLIMUS. [Suspect]
     Active Substance: TACROLIMUS
     Indication: RENAL TRANSPLANT
     Dosage: 6 MG, ONCE DAILY (1 MG X1, 5 MG X 1).
     Route: 048
     Dates: start: 20180911, end: 201906

REACTIONS (14)
  - Secondary immunodeficiency [Recovering/Resolving]
  - Bacteraemia [Recovered/Resolved]
  - Extra dose administered [Unknown]
  - Complications of transplanted kidney [Recovering/Resolving]
  - Gastroenteritis [Recovering/Resolving]
  - Urinary tract infection [Recovering/Resolving]
  - Pyrexia [Recovering/Resolving]
  - Complications of transplanted kidney [Recovering/Resolving]
  - Tremor [Not Recovered/Not Resolved]
  - Urinary tract infection [Recovered/Resolved]
  - Renal graft infection [Recovered/Resolved]
  - Urinary tract infection [Not Recovered/Not Resolved]
  - Expired product administered [Unknown]
  - Immunosuppressant drug level decreased [Not Recovered/Not Resolved]

NARRATIVE: CASE EVENT DATE: 20180911
